FAERS Safety Report 25415962 (Version 1)
Quarter: 2025Q2

REPORT INFORMATION
  Report Type: Spontaneous
  Country: FR (occurrence: FR)
  Receive Date: 20250610
  Receipt Date: 20250610
  Transmission Date: 20250717
  Serious: Yes (Hospitalization)
  Sender: CHEPLAPHARM
  Company Number: None

PATIENT
  Age: 31 Year
  Sex: Male

DRUGS (5)
  1. OLANZAPINE [Suspect]
     Active Substance: OLANZAPINE
  2. BUTYROLACTONE [Suspect]
     Active Substance: BUTYROLACTONE
     Route: 048
     Dates: start: 20250417, end: 20250424
  3. BUTYROLACTONE [Suspect]
     Active Substance: BUTYROLACTONE
     Route: 048
  4. METHYLPHENIDATE HYDROCHLORIDE [Suspect]
     Active Substance: METHYLPHENIDATE HYDROCHLORIDE
  5. LAMOTRIGINE [Suspect]
     Active Substance: LAMOTRIGINE

REACTIONS (3)
  - Drug abuse [Not Recovered/Not Resolved]
  - Agitation [Recovered/Resolved]
  - Persecutory delusion [Recovering/Resolving]

NARRATIVE: CASE EVENT DATE: 20250424
